FAERS Safety Report 9052712 (Version 1)
Quarter: 2013Q1

REPORT INFORMATION
  Report Type: Report from Study
  Country: DE (occurrence: DE)
  Receive Date: 20130207
  Receipt Date: 20130207
  Transmission Date: 20140127
  Serious: Yes (Death, Hospitalization)
  Sender: FDA-Public Use
  Company Number: DE-ROCHE-1076428

PATIENT
  Age: 71 None
  Sex: Male
  Weight: 66 kg

DRUGS (7)
  1. BEVACIZUMAB [Suspect]
     Indication: NON-SMALL CELL LUNG CANCER
     Route: 042
     Dates: start: 20120524, end: 20120524
  2. GEMCITABINE [Suspect]
     Indication: NON-SMALL CELL LUNG CANCER
     Route: 042
     Dates: start: 20120524, end: 20120530
  3. CARBOPLATIN [Suspect]
     Indication: NON-SMALL CELL LUNG CANCER
     Route: 042
     Dates: start: 20120524, end: 20120524
  4. ASS [Concomitant]
     Route: 048
     Dates: end: 20120606
  5. RAMIPRIL [Concomitant]
     Indication: HYPERTENSION
     Route: 065
     Dates: start: 20120601
  6. ADALAT [Concomitant]
     Indication: HYPERTENSION
     Route: 065
     Dates: start: 20120601
  7. ENOXAPARIN [Concomitant]
     Indication: THROMBOSIS PROPHYLAXIS
     Route: 058
     Dates: start: 20120602

REACTIONS (5)
  - Sepsis [Fatal]
  - Pneumonia [Fatal]
  - Aphasia [Fatal]
  - Hemiparesis [Fatal]
  - Cerebral ischaemia [Fatal]
